FAERS Safety Report 7663283-0 (Version None)
Quarter: 2011Q3

REPORT INFORMATION
  Report Type: 
  Country: None (occurrence: None)
  Receive Date: 20110805
  Receipt Date: 20100826
  Transmission Date: 20111222
  Serious: No
  Sender: FDA-Public Use
  Company Number: US-ABBOTT-10P-163-0667193-00

PATIENT
  Sex: Male
  Weight: 117.13 kg

DRUGS (8)
  1. NIASPAN [Suspect]
     Indication: BLOOD CHOLESTEROL INCREASED
     Dates: start: 20100825
  2. ALLOPURINOL [Concomitant]
     Indication: ARTHRITIS
  3. TRAMADOL HCL [Concomitant]
     Indication: ARTHRITIS
  4. AZOR [Concomitant]
     Indication: HYPERTENSION
  5. ASPIRIN [Concomitant]
     Indication: CARDIAC DISORDER
  6. LIPITOR [Concomitant]
     Indication: BLOOD CHOLESTEROL INCREASED
  7. GABAPENTIN [Concomitant]
     Indication: RESTLESS LEGS SYNDROME
  8. SULFASALAZINE [Concomitant]
     Indication: ARTHRITIS

REACTIONS (3)
  - DIZZINESS [None]
  - FLUSHING [None]
  - NAUSEA [None]
